FAERS Safety Report 8175498-6 (Version None)
Quarter: 2012Q1

REPORT INFORMATION
  Report Type: 
  Country: None (occurrence: None)
  Receive Date: 20120229
  Receipt Date: 20120220
  Transmission Date: 20120608
  Serious: Yes (Other)
  Sender: FDA-Public Use
  Company Number: US-ASTRAZENECA-2012SE11641

PATIENT
  Age: 54 Year
  Sex: Female
  Weight: 80.7 kg

DRUGS (15)
  1. CLONAZEPAM [Concomitant]
  2. FEXOFENADINE [Concomitant]
  3. BUSPIRONE HCL [Concomitant]
  4. CALCIUM [Concomitant]
  5. HYOSCYAMINE HCL [Concomitant]
     Dosage: 1-2 125 MG QD
  6. CITALOPRAM HYDROBROMIDE [Concomitant]
  7. AMPHETAMINE AND DEXTROAMPHETAMINE SALTS [Concomitant]
  8. NEXIUM [Suspect]
     Indication: HIATUS HERNIA
     Route: 048
  9. FOLIC ACID [Concomitant]
  10. CYCLOBENZAPRINE [Concomitant]
     Dosage: HS
  11. NYSTATIN [Concomitant]
     Dosage: TID
  12. SEROQUEL [Suspect]
     Route: 048
  13. POLYETHYLENE GLYCOL [Concomitant]
     Dosage: QD
  14. NEXIUM [Suspect]
     Indication: GASTROOESOPHAGEAL REFLUX DISEASE
     Route: 048
  15. CODEINE SULFATE [Concomitant]

REACTIONS (10)
  - TONGUE DRY [None]
  - PAIN IN EXTREMITY [None]
  - OEDEMA PERIPHERAL [None]
  - INAPPROPRIATE SCHEDULE OF DRUG ADMINISTRATION [None]
  - OFF LABEL USE [None]
  - INCORRECT DRUG ADMINISTRATION DURATION [None]
  - BREAST CANCER [None]
  - DRUG DOSE OMISSION [None]
  - FOOT FRACTURE [None]
  - GLOSSODYNIA [None]
